FAERS Safety Report 9807756 (Version 1)
Quarter: 2014Q1

REPORT INFORMATION
  Report Type: Spontaneous
  Country: US (occurrence: US)
  Receive Date: 20140110
  Receipt Date: 20140110
  Transmission Date: 20141002
  Serious: Yes (Death)
  Sender: FDA-Public Use
  Company Number: US-ASTRAZENECA-2014SE01966

PATIENT
  Age: 53 Year
  Sex: Female

DRUGS (11)
  1. LISINOPRIL [Suspect]
     Route: 048
  2. METFORMIN [Suspect]
     Route: 048
  3. DIAZEPAM [Suspect]
     Route: 048
  4. MIRTAZAPINE [Suspect]
     Route: 048
  5. VALPROIC ACID [Suspect]
     Route: 048
  6. ACETAMINOPHEN (NON AZ PRODUCT) [Suspect]
     Route: 048
  7. BUPROPION [Suspect]
     Route: 048
  8. GABAPENTIN [Suspect]
     Route: 048
  9. DULOXETINE [Suspect]
     Route: 048
  10. OXYBUTYNIN [Suspect]
     Route: 048
  11. LOVASTATIN [Suspect]
     Route: 048

REACTIONS (2)
  - Toxicity to various agents [Fatal]
  - Completed suicide [Fatal]
